FAERS Safety Report 8440081-1 (Version None)
Quarter: 2012Q2

REPORT INFORMATION
  Report Type: 
  Country: None (occurrence: None)
  Receive Date: 20120615
  Receipt Date: 20120608
  Transmission Date: 20120825
  Serious: Yes (Death, Hospitalization)
  Sender: FDA-Public Use
  Company Number: HU-ELI_LILLY_AND_COMPANY-HU201203008994

PATIENT
  Age: 38 Year
  Sex: Male
  Weight: 40 kg

DRUGS (8)
  1. PENTOSAN [Concomitant]
  2. METHYLPREDNISOLONE [Concomitant]
     Indication: CROHN'S DISEASE
     Dosage: 20 MG, UNK
  3. PANTOPRAZOLE [Concomitant]
     Indication: GASTROOESOPHAGEAL REFLUX DISEASE
  4. PENTASA [Concomitant]
     Indication: LARGE INTESTINAL ULCER
  5. FORTEO [Suspect]
     Indication: OSTEOPOROSIS
     Dosage: 20 UG, UNK
     Dates: end: 20120225
  6. VITAMIN D [Concomitant]
     Indication: OSTEOPOROSIS
  7. AMLODIPINE [Concomitant]
     Indication: HYPERTENSION
  8. ANALGESICS [Concomitant]
     Indication: PAIN

REACTIONS (12)
  - RED BLOOD CELL SEDIMENTATION RATE ABNORMAL [None]
  - BLOOD ALKALINE PHOSPHATASE INCREASED [None]
  - RENAL IMPAIRMENT [None]
  - ASTHENIA [None]
  - CRYSTAL URINE PRESENT [None]
  - GENERAL PHYSICAL HEALTH DETERIORATION [None]
  - HEPATIC ENZYME INCREASED [None]
  - WHITE BLOOD CELL DISORDER [None]
  - FEEDING DISORDER [None]
  - SPINAL PAIN [None]
  - SUDDEN CARDIAC DEATH [None]
  - MOBILITY DECREASED [None]
